FAERS Safety Report 24663445 (Version 1)
Quarter: 2024Q4

REPORT INFORMATION
  Report Type: Spontaneous
  Country: US (occurrence: US)
  Receive Date: 20241126
  Receipt Date: 20241126
  Transmission Date: 20250115
  Serious: Yes (Hospitalization)
  Sender: ROCHE
  Company Number: US-ROCHE-10000138165

PATIENT
  Sex: Male
  Weight: 88 kg

DRUGS (4)
  1. OBINUTUZUMAB [Suspect]
     Active Substance: OBINUTUZUMAB
     Indication: Chronic lymphocytic leukaemia
     Route: 065
     Dates: start: 20230619
  2. VENETOCLAX [Concomitant]
     Active Substance: VENETOCLAX
  3. ALLOPURINOL [Concomitant]
     Active Substance: ALLOPURINOL
  4. OCTAGAM IMMUNE GLOBULIN (HUMAN) [Concomitant]
     Active Substance: HUMAN IMMUNOGLOBULIN G

REACTIONS (3)
  - Infusion related reaction [Unknown]
  - Pneumonia [Unknown]
  - Rhinovirus infection [Unknown]
